FAERS Safety Report 4945016-1 (Version None)
Quarter: 2006Q1

REPORT INFORMATION
  Report Type: 
  Country: None (occurrence: None)
  Receive Date: 20060117
  Receipt Date: 20050628
  Transmission Date: 20060701
  Serious: Yes (Disabling)
  Sender: FDA-Public Use
  Company Number: A03200501971

PATIENT
  Age: 82 Year
  Sex: Female
  Weight: 64.8644 kg

DRUGS (3)
  1. PLAVIX [Suspect]
     Indication: ARTERIAL DISORDER
     Dosage: 75 MG QD - ORAL
     Route: 048
     Dates: start: 20050606, end: 20050601
  2. DIURETIC [Concomitant]
  3. LEVOTHYROXINE SODIUM [Concomitant]

REACTIONS (2)
  - ARTHRALGIA [None]
  - BACK PAIN [None]
